FAERS Safety Report 4822859-6 (Version None)
Quarter: 2005Q4

REPORT INFORMATION
  Report Type: 
  Country: None (occurrence: None)
  Receive Date: 20051104
  Receipt Date: 20051024
  Transmission Date: 20060501
  Serious: Yes (Other)
  Sender: FDA-Public Use
  Company Number: 05-000843

PATIENT
  Age: 46 Year
  Sex: Male
  Weight: 88.905 kg

DRUGS (4)
  1. ESTROSTEP FE [Suspect]
     Indication: MOOD SWINGS
     Dosage: 20-30-35/1000 UG QD,ORAL
     Route: 048
     Dates: start: 20050101
  2. COLAZAL (BALSALAZIDE SODIUM) [Concomitant]
  3. VITAMIN C (ASCORBIC ACID) [Concomitant]
  4. FLAXSEED OIL (LINSEED OIL) [Concomitant]

REACTIONS (8)
  - CARDIAC VALVE DISEASE [None]
  - COLITIS ULCERATIVE [None]
  - CONDITION AGGRAVATED [None]
  - FOOD CRAVING [None]
  - HEART RATE IRREGULAR [None]
  - HUNGER [None]
  - MUSCLE SPASMS [None]
  - WEIGHT INCREASED [None]
